FAERS Safety Report 18427453 (Version 1)
Quarter: 2020Q4

REPORT INFORMATION
  Report Type: Spontaneous
  Country: US (occurrence: US)
  Receive Date: 20201026
  Receipt Date: 20201026
  Transmission Date: 20210114
  Serious: Yes (Hospitalization)
  Sender: FDA-Public Use
  Company Number: US-FRESENIUS MEDICAL CARE RENAL THERAPIES GROUP-FMC-2010-001244

PATIENT
  Age: 64 Year
  Sex: Female
  Weight: 56 kg

DRUGS (15)
  1. DELFLEX WITH DEXTROSE 4.25% LOW MAGNESIUM LOW CALCIUM [Suspect]
     Active Substance: CALCIUM CHLORIDE\DEXTROSE\MAGNESIUM CHLORIDE\SODIUM CHLORIDE\SODIUM LACTATE
     Indication: END STAGE RENAL DISEASE
     Dosage: FILLS 6, FILL VOLUME 2300 ML, LAST FILL VOLUME 2000ML, TOTAL VOLUME 13,800 ML, TOTAL SLEEP TIME 9.0
     Route: 033
  2. FOLIC ACID. [Concomitant]
     Active Substance: FOLIC ACID
  3. GENTAMYCIN [Concomitant]
     Active Substance: GENTAMICIN
  4. DELFLEX WITH DEXTROSE 1.5% LOW MAGNESIUM LOW CALCIUM [Suspect]
     Active Substance: CALCIUM CHLORIDE\DEXTROSE\MAGNESIUM CHLORIDE\SODIUM CHLORIDE\SODIUM LACTATE
     Indication: END STAGE RENAL DISEASE
     Dosage: FILLS 6, FILL VOLUME 2300 ML, LAST FILL VOLUME 2000ML, TOTAL VOLUME 13,800 ML, TOTAL SLEEP TIME 9.0
     Route: 033
  5. ACETAMINOPHEN. [Concomitant]
     Active Substance: ACETAMINOPHEN
  6. CALCITRIOL. [Concomitant]
     Active Substance: CALCITRIOL
  7. RENAPLEX D [Concomitant]
  8. DELFLEX WITH DEXTROSE 2.5% LOW MAGNESIUM LOW CALCIUM [Suspect]
     Active Substance: CALCIUM CHLORIDE\DEXTROSE\MAGNESIUM CHLORIDE\SODIUM CHLORIDE\SODIUM LACTATE
     Indication: END STAGE RENAL DISEASE
     Dosage: FILLS 6, FILL VOLUME 2300 ML, LAST FILL VOLUME 2000ML, TOTAL VOLUME 13,800 ML, TOTAL SLEEP TIME 9.0
     Route: 033
  9. SODIUM BICARBONATE. [Concomitant]
     Active Substance: SODIUM BICARBONATE
  10. VITAMIN D3 [Concomitant]
     Active Substance: CHOLECALCIFEROL
  11. ASPIRIN. [Concomitant]
     Active Substance: ASPIRIN
  12. FISH OIL [Concomitant]
     Active Substance: FISH OIL
  13. SEVELAMER [Concomitant]
     Active Substance: SEVELAMER
  14. LACTULOSE. [Concomitant]
     Active Substance: LACTULOSE
  15. POTASSIUM CHLORIDE. [Concomitant]
     Active Substance: POTASSIUM CHLORIDE

REACTIONS (1)
  - Hypotension [Recovered/Resolved]
